FAERS Safety Report 7236070-5 (Version None)
Quarter: 2011Q1

REPORT INFORMATION
  Report Type: 
  Country: None (occurrence: None)
  Receive Date: 20110120
  Receipt Date: 20110112
  Transmission Date: 20110831
  Serious: Yes (Hospitalization)
  Sender: FDA-Public Use
  Company Number: US-ASTRAZENECA-2011SE02095

PATIENT
  Age: 989 Month
  Sex: Female

DRUGS (15)
  1. PROVENTIL [Concomitant]
  2. LORAZEPAM [Concomitant]
  3. SPIRIVA [Concomitant]
  4. ASPIRIN [Concomitant]
  5. ZANTAC [Concomitant]
  6. IMDUR [Concomitant]
  7. PENTOXIFYLLI [Concomitant]
     Dosage: UNKNOWN DOSE TWO TIMES A DAY
  8. VITAMIN D [Concomitant]
  9. GENERIC PREVACOL [Concomitant]
  10. COZAAR [Concomitant]
  11. MUCINEX [Concomitant]
  12. OXYCODONE HCL [Concomitant]
  13. ALBUTEROL IN NEBULIZER [Concomitant]
  14. SYMBICORT [Suspect]
     Indication: CHRONIC OBSTRUCTIVE PULMONARY DISEASE
     Dosage: UNKNOWN DOSE TWO TIMES A DAY
     Route: 055
  15. FOLIC ACID [Concomitant]

REACTIONS (2)
  - DRUG INEFFECTIVE [None]
  - CHRONIC OBSTRUCTIVE PULMONARY DISEASE [None]
